FAERS Safety Report 12172402 (Version 2)
Quarter: 2016Q2

REPORT INFORMATION
  Report Type: Spontaneous
  Country: US (occurrence: US)
  Receive Date: 20160311
  Receipt Date: 20160421
  Transmission Date: 20160815
  Serious: Yes (Other)
  Sender: FDA-Public Use
  Company Number: US-SHIRE-US201602741

PATIENT
  Age: 21 Year
  Sex: Female
  Weight: 43.54 kg

DRUGS (5)
  1. MAG-TAB [Concomitant]
     Indication: PROPHYLAXIS
     Dosage: 84 MG, 2X/DAY:BID
     Route: 048
     Dates: start: 20160214, end: 20160226
  2. GATTEX [Suspect]
     Active Substance: TEDUGLUTIDE\WATER
     Indication: SHORT-BOWEL SYNDROME
     Dosage: 2.4 UNK, 1X/DAY:QD
     Route: 058
     Dates: start: 20151222, end: 20160222
  3. TPN [Concomitant]
     Active Substance: AMINO ACIDS\DEXTROSE\ELECTROLYTES NOS\SOYBEAN OIL
     Indication: SHORT-BOWEL SYNDROME
     Dosage: 1500 ML, OVER 7 HOURS X5 DAYS/WEEK
     Route: 042
  4. GATTEX [Suspect]
     Active Substance: TEDUGLUTIDE\WATER
     Dosage: 1.8 MG, 1X/DAY:QD
     Route: 058
     Dates: start: 20160223, end: 20160226
  5. MIRALAX [Concomitant]
     Active Substance: POLYETHYLENE GLYCOL 3350
     Indication: GASTROINTESTINAL STOMA OUTPUT DECREASED
     Dosage: 17 G, 1X/DAY:QD
     Route: 048
     Dates: start: 20160214

REACTIONS (3)
  - Obstruction [Recovered/Resolved]
  - Gastrointestinal stoma output decreased [Recovered/Resolved]
  - Abdominal discomfort [Recovered/Resolved]

NARRATIVE: CASE EVENT DATE: 20160215
